FAERS Safety Report 9921421 (Version 2)
Quarter: 2014Q1

REPORT INFORMATION
  Report Type: Spontaneous
  Country: US (occurrence: US)
  Receive Date: 20140225
  Receipt Date: 20140227
  Transmission Date: 20141002
  Serious: Yes (Death)
  Sender: FDA-Public Use
  Company Number: US-009507513-1402USA010956

PATIENT
  Age: 67 Year
  Sex: Male

DRUGS (1)
  1. EMEND [Suspect]
     Dosage: 125/80 MG, UNSPECIFIED
     Route: 048

REACTIONS (1)
  - Death [Fatal]
